FAERS Safety Report 8341900-X (Version None)
Quarter: 2012Q2

REPORT INFORMATION
  Report Type: 
  Country: None (occurrence: None)
  Receive Date: 20120507
  Receipt Date: 20120502
  Transmission Date: 20120825
  Serious: Yes (Hospitalization, Other)
  Sender: FDA-Public Use
  Company Number: US-BRISTOL-MYERS SQUIBB COMPANY-16510588

PATIENT
  Age: 49 Year
  Sex: Female
  Weight: 54 kg

DRUGS (6)
  1. MYCOPHENOLATE MOFETIL (CELLCEPT) [Suspect]
     Indication: RENAL TRANSPLANT
     Route: 048
     Dates: start: 20120328
  2. LOPRESSOR [Concomitant]
     Dates: start: 20120329
  3. ASPIRIN [Concomitant]
     Dates: start: 20120329
  4. CAMPATH [Suspect]
     Indication: RENAL TRANSPLANT
     Route: 042
     Dates: start: 20120328, end: 20120328
  5. MEDROL [Suspect]
     Indication: RENAL TRANSPLANT
     Dosage: INJ
     Route: 042
     Dates: start: 20120328, end: 20120401
  6. NULOJIX [Suspect]
     Indication: RENAL TRANSPLANT
     Dosage: 10MG/KG,650MG SINGLE  28MAR12-28MAR12 01APR12-01APR12
     Route: 042
     Dates: start: 20120328, end: 20120401

REACTIONS (2)
  - VENOUS THROMBOSIS [None]
  - RENAL ARTERY THROMBOSIS [None]
